FAERS Safety Report 22211539 (Version 1)
Quarter: 2023Q2

REPORT INFORMATION
  Report Type: Spontaneous
  Country: US (occurrence: US)
  Receive Date: 20230414
  Receipt Date: 20230414
  Transmission Date: 20230721
  Serious: No
  Sender: FDA-Public Use
  Company Number: US-PFIZER INC-PV202300066398

PATIENT
  Age: 62 Year
  Sex: Female

DRUGS (1)
  1. XELJANZ XR [Suspect]
     Active Substance: TOFACITINIB CITRATE
     Indication: Psoriatic arthropathy
     Dosage: UNK UNK, DAILY
     Route: 048
     Dates: start: 2019

REACTIONS (3)
  - Pharyngitis streptococcal [Unknown]
  - Pain [Recovering/Resolving]
  - Inappropriate schedule of product administration [Unknown]
